FAERS Safety Report 12952315 (Version 1)
Quarter: 2016Q4

REPORT INFORMATION
  Report Type: Other
  Country: GB (occurrence: GB)
  Receive Date: 20161117
  Receipt Date: 20161117
  Transmission Date: 20170207
  Serious: Yes (Other)
  Sender: FDA-Public Use
  Company Number: GB-TAKEDA-2016TJP025080

PATIENT
  Age: 64 Year
  Sex: Female

DRUGS (1)
  1. LANSOPRAZOLE. [Suspect]
     Active Substance: LANSOPRAZOLE
     Indication: DYSPEPSIA
     Dosage: 15 MG, QD
     Route: 048
     Dates: start: 2010, end: 20161028

REACTIONS (2)
  - Wrist fracture [Recovered/Resolved with Sequelae]
  - Fall [Unknown]

NARRATIVE: CASE EVENT DATE: 20161027
